FAERS Safety Report 6016182-4 (Version None)
Quarter: 2008Q4

REPORT INFORMATION
  Report Type: 
  Country: None (occurrence: None)
  Receive Date: 20081218
  Receipt Date: 20081203
  Transmission Date: 20090506
  Serious: Yes (Life-Threatening)
  Sender: FDA-Public Use
  Company Number: 004949

PATIENT
  Age: 62 Year
  Sex: Male
  Weight: 70 kg

DRUGS (6)
  1. PLETAL [Suspect]
     Indication: PERIPHERAL ARTERIAL OCCLUSIVE DISEASE
     Dosage: 100 MG, BID ORAL
     Route: 048
     Dates: end: 20081006
  2. DELIX PLUS (HYDROCHLOROTHIAZIDE, RAMIPRIL) [Concomitant]
  3. SIMVASTATIN [Concomitant]
  4. TRAMADOL HCL [Concomitant]
  5. PANTOPRAZOLE SODIUM [Concomitant]
  6. MARCUMAR [Concomitant]

REACTIONS (1)
  - PANCYTOPENIA [None]
